FAERS Safety Report 17982230 (Version 4)
Quarter: 2021Q2

REPORT INFORMATION
  Report Type: Spontaneous
  Country: US (occurrence: US)
  Receive Date: 20200706
  Receipt Date: 20210622
  Transmission Date: 20210717
  Serious: Yes (Other)
  Sender: FDA-Public Use
  Company Number: US-GILEAD-2020-0478517

PATIENT
  Age: 38 Year
  Sex: Female
  Weight: 88.89 kg

DRUGS (17)
  1. VANCOMYCIN [Concomitant]
     Active Substance: VANCOMYCIN
  2. EPIVIR [Concomitant]
     Active Substance: LAMIVUDINE
  3. TRUVADA [Suspect]
     Active Substance: EMTRICITABINE\TENOFOVIR DISOPROXIL FUMARATE
     Indication: HIV INFECTION
     Dosage: UNK
     Route: 048
     Dates: start: 2007, end: 2011
  4. FAMOTIDINE. [Concomitant]
     Active Substance: FAMOTIDINE
  5. COMBIVIR [Concomitant]
     Active Substance: LAMIVUDINE\ZIDOVUDINE
  6. HEPARIN [Concomitant]
     Active Substance: HEPARIN SODIUM
  7. PREDNISOLONE. [Concomitant]
     Active Substance: PREDNISOLONE
  8. NORVIR [Concomitant]
     Active Substance: RITONAVIR
  9. ACYCLOVIR [ACICLOVIR] [Concomitant]
     Active Substance: ACYCLOVIR
  10. TACROLIMUS. [Concomitant]
     Active Substance: TACROLIMUS
  11. ACETAMINOPHEN. [Concomitant]
     Active Substance: ACETAMINOPHEN
  12. VIREAD [Suspect]
     Active Substance: TENOFOVIR DISOPROXIL FUMARATE
     Indication: HIV INFECTION
     Dosage: UNK
     Route: 048
     Dates: start: 2007, end: 2011
  13. BIKTARVY [Concomitant]
     Active Substance: BICTEGRAVIR SODIUM\EMTRICITABINE\TENOFOVIR ALAFENAMIDE FUMARATE
  14. BACTRIM [Concomitant]
     Active Substance: SULFAMETHOXAZOLE\TRIMETHOPRIM
  15. OMEPRAZOLE. [Concomitant]
     Active Substance: OMEPRAZOLE
  16. ISENTRESS [Concomitant]
     Active Substance: RALTEGRAVIR POTASSIUM
  17. PREZISTA [Concomitant]
     Active Substance: DARUNAVIR ETHANOLATE

REACTIONS (9)
  - End stage renal disease [Not Recovered/Not Resolved]
  - Bone loss [Unknown]
  - Skeletal injury [Unknown]
  - Osteonecrosis [Not Recovered/Not Resolved]
  - Bone density decreased [Unknown]
  - Renal injury [Unknown]
  - Chronic kidney disease [Unknown]
  - Renal failure [Unknown]
  - Multiple fractures [Unknown]

NARRATIVE: CASE EVENT DATE: 20110615
